FAERS Safety Report 12970741 (Version 1)
Quarter: 2016Q4

REPORT INFORMATION
  Report Type: Other
  Country: TW (occurrence: TW)
  Receive Date: 20161123
  Receipt Date: 20161123
  Transmission Date: 20170207
  Serious: Yes (Other)
  Sender: FDA-Public Use
  Company Number: TW-ALSI-201600340

PATIENT
  Age: 76 Year
  Sex: Female
  Weight: 51 kg

DRUGS (7)
  1. ESMOLOL [Concomitant]
     Active Substance: ESMOLOL HYDROCHLORIDE
  2. THIAMYLAL [Concomitant]
     Active Substance: THIAMYLAL
  3. ROCURONIUM [Concomitant]
     Active Substance: ROCURONIUM BROMIDE
  4. ISOFLURANE. [Concomitant]
     Active Substance: ISOFLURANE
  5. CARBON DIOXIDE. [Suspect]
     Active Substance: CARBON DIOXIDE
     Indication: LAPAROSCOPIC SURGERY
  6. FENTANYL. [Concomitant]
     Active Substance: FENTANYL
  7. OXYGEN. [Concomitant]
     Active Substance: OXYGEN

REACTIONS (2)
  - Air embolism [Recovered/Resolved]
  - Paradoxical embolism [Recovered/Resolved]
